FAERS Safety Report 4388260-7 (Version None)
Quarter: 2004Q2

REPORT INFORMATION
  Report Type: 
  Country: None (occurrence: None)
  Receive Date: 20040629
  Receipt Date: 20040629
  Transmission Date: 20050107
  Serious: Yes (Life-Threatening, Hospitalization)
  Sender: FDA-Public Use
  Company Number: None

PATIENT
  Age: 74 Year
  Sex: Male
  Weight: 72.5755 kg

DRUGS (1)
  1. ERBITUX (IMCLONE/BRISTOL-MYERS SQUIBB) [Suspect]
     Indication: COLON CANCER
     Dosage: 735 MG IV
     Route: 042
     Dates: start: 20040623

REACTIONS (4)
  - COMA [None]
  - HEART RATE DECREASED [None]
  - PULSE ABNORMAL [None]
  - SKIN DISCOLOURATION [None]
